FAERS Safety Report 24262558 (Version 1)
Quarter: 2024Q3

REPORT INFORMATION
  Report Type: Spontaneous
  Country: US (occurrence: US)
  Receive Date: 20240829
  Receipt Date: 20240829
  Transmission Date: 20241016
  Serious: No
  Sender: AMNEAL
  Company Number: US-AMNEAL PHARMACEUTICALS-2024-AMRX-01717

PATIENT
  Age: 76 Year
  Sex: Female
  Weight: 93.424 kg

DRUGS (1)
  1. TOBRAMYCIN [Suspect]
     Active Substance: TOBRAMYCIN\TOBRAMYCIN SULFATE
     Indication: Product used for unknown indication
     Dosage: UNK
     Route: 045
     Dates: start: 20240508, end: 20240512

REACTIONS (1)
  - Dysphonia [Recovering/Resolving]

NARRATIVE: CASE EVENT DATE: 20240509
